FAERS Safety Report 8168993-7 (Version None)
Quarter: 2012Q1

REPORT INFORMATION
  Report Type: 
  Country: None (occurrence: None)
  Receive Date: 20120227
  Receipt Date: 20120217
  Transmission Date: 20120608
  Serious: Yes (Other)
  Sender: FDA-Public Use
  Company Number: PHHY2012JP014090

PATIENT
  Age: 60 Year
  Sex: Female

DRUGS (2)
  1. CARBOPLATIN [Suspect]
     Indication: CHEMOTHERAPY
     Dosage: AUC=5
  2. PACLITAXEL [Suspect]
     Indication: CHEMOTHERAPY
     Dosage: 175 MG/M2, UNK

REACTIONS (6)
  - INAPPROPRIATE ANTIDIURETIC HORMONE SECRETION [None]
  - ATAXIA [None]
  - HYPONATRAEMIA [None]
  - RESTLESSNESS [None]
  - DYSPHAGIA [None]
  - DISORIENTATION [None]
